FAERS Safety Report 7989079-8 (Version None)
Quarter: 2011Q4

REPORT INFORMATION
  Report Type: 
  Country: None (occurrence: None)
  Receive Date: 20111219
  Receipt Date: 20111207
  Transmission Date: 20120403
  Serious: Yes (Hospitalization, Other)
  Sender: FDA-Public Use
  Company Number: US-US-EMD SERONO, INC.-7049314

PATIENT
  Sex: Female

DRUGS (28)
  1. CALCIUM [Concomitant]
  2. MECLIZINE [Concomitant]
     Route: 048
  3. BACLOFEN [Concomitant]
     Route: 048
  4. LISINOPRIL [Concomitant]
     Route: 048
  5. MAGNESIUM [Concomitant]
  6. MULTI-VITAMIN [Concomitant]
  7. FLOVENT [Concomitant]
  8. METOPROLOL TARTRATE [Concomitant]
     Route: 048
  9. PROMETHAZINE [Concomitant]
  10. VALIUM [Concomitant]
     Route: 048
  11. VITAMIN D [Concomitant]
  12. AMRIX [Concomitant]
  13. LASIX [Concomitant]
     Route: 048
  14. TOPAMAX [Concomitant]
     Route: 048
  15. POTASSIUM CHLORIDE [Concomitant]
  16. PERCOCET [Concomitant]
     Route: 048
  17. ACETAMINOPHEN [Concomitant]
     Indication: PREMEDICATION
  18. LOVENOX [Concomitant]
  19. FLEXERIL [Concomitant]
  20. VITAMIN B-12 [Concomitant]
  21. PROAIR HFA [Concomitant]
  22. REBIF [Suspect]
     Indication: MULTIPLE SCLEROSIS
     Route: 058
     Dates: start: 20110113
  23. BLOOD THINNERS [Concomitant]
     Indication: ANTICOAGULANT THERAPY
  24. COUMADIN [Concomitant]
  25. TRILEPTAL [Concomitant]
  26. CRESTOR [Concomitant]
     Route: 048
  27. PREVACID [Concomitant]
     Route: 048
  28. ACIPHEX [Concomitant]
     Route: 048

REACTIONS (13)
  - CEREBROVASCULAR ACCIDENT [None]
  - INJECTION SITE ERYTHEMA [None]
  - ANAEMIA [None]
  - INJECTION SITE HAEMATOMA [None]
  - INJECTION SITE PAIN [None]
  - PNEUMONIA [None]
  - PROTHROMBIN TIME ABNORMAL [None]
  - INJECTION SITE MASS [None]
  - MULTIPLE SCLEROSIS RELAPSE [None]
  - CEREBRAL HAEMORRHAGE [None]
  - THERAPEUTIC RESPONSE UNEXPECTED [None]
  - BLOOD THYROID STIMULATING HORMONE DECREASED [None]
  - INAPPROPRIATE SCHEDULE OF DRUG ADMINISTRATION [None]
